FAERS Safety Report 9372229 (Version 1)
Quarter: 2013Q2

REPORT INFORMATION
  Report Type: Spontaneous
  Country: US (occurrence: None)
  Receive Date: 20130617
  Receipt Date: 20130617
  Transmission Date: 20140414
  Serious: Yes (Hospitalization)
  Sender: FDA-Public Use
  Company Number: 2013PROUSA02757

PATIENT
  Age: 63 Year
  Sex: Male
  Weight: 95.7 kg

DRUGS (8)
  1. PROVENGE [Suspect]
     Indication: PROSTATE CANCER METASTATIC
     Route: 042
     Dates: start: 20130405, end: 20130405
  2. GABAPENTIN [Concomitant]
  3. CALCIUM CARBONATE [Concomitant]
  4. GLIPIZIDE [Concomitant]
  5. JANUVIA (SITAGLIPTIN PHOSPHATE) [Concomitant]
  6. METFORMIN HCL (METFORMIN HYDROCHLORIDE) [Concomitant]
  7. VENLAFAXINE (VENLAFAXINE HYDROCHLORIDE) (UNKNOWN) (VENLAFAXINE HYDROCHLORIDE) [Concomitant]
  8. VITAMIN D (ERGOCALCIFEROL) [Concomitant]

REACTIONS (4)
  - Cardiac failure congestive [None]
  - Bundle branch block [None]
  - Peripheral arterial occlusive disease [None]
  - Coronary artery disease [None]
